FAERS Safety Report 6517014-8 (Version None)
Quarter: 2009Q4

REPORT INFORMATION
  Report Type: 
  Country: None (occurrence: None)
  Receive Date: 20091223
  Receipt Date: 20091217
  Transmission Date: 20100525
  Serious: Yes (Death, Hospitalization)
  Sender: FDA-Public Use
  Company Number: GXKR2009ES13573

PATIENT
  Age: 24 Year
  Sex: Female

DRUGS (4)
  1. HALOPERIDOL (NGX) [Suspect]
     Indication: DEPRESSION
     Dosage: 13 MG/DAY
     Route: 065
     Dates: start: 19910801
  2. FLUOXETINE (NGX) [Suspect]
     Indication: DEPRESSION
     Dosage: UNK
     Dates: start: 19970201
  3. FLUOXETINE (NGX) [Suspect]
     Indication: PSYCHOTIC DISORDER
  4. CLORAZEPATE DIPOTASSIUM [Concomitant]
     Dosage: UNK
     Route: 065
     Dates: start: 19920501

REACTIONS (18)
  - ANGIOPATHY [None]
  - ANURIA [None]
  - BRAIN HERNIATION [None]
  - BRAIN OEDEMA [None]
  - HAEMODYNAMIC INSTABILITY [None]
  - HYPERHIDROSIS [None]
  - HYPERTHERMIA [None]
  - HYPOTHERMIA [None]
  - MENINGEAL DISORDER [None]
  - MOTOR DYSFUNCTION [None]
  - MUSCLE RIGIDITY [None]
  - MYOCLONUS [None]
  - NEUROLEPTIC MALIGNANT SYNDROME [None]
  - RHABDOMYOLYSIS [None]
  - SALIVARY HYPERSECRETION [None]
  - SEROTONIN SYNDROME [None]
  - SHOCK [None]
  - TACHYPNOEA [None]
